FAERS Safety Report 7207923-9 (Version None)
Quarter: 2010Q4

REPORT INFORMATION
  Report Type: 
  Country: None (occurrence: None)
  Receive Date: 20101221
  Receipt Date: 20101208
  Transmission Date: 20110411
  Serious: Yes (Death)
  Sender: FDA-Public Use
  Company Number: JPI-P-013191

PATIENT
  Age: 77 Year
  Sex: Male

DRUGS (4)
  1. XYREM [Suspect]
     Indication: INSOMNIA
     Dosage: SEE IMAGE
     Route: 048
     Dates: start: 20051208, end: 20060601
  2. XYREM [Suspect]
     Indication: INSOMNIA
     Dosage: SEE IMAGE
     Route: 048
     Dates: start: 20060601, end: 20081103
  3. XYREM [Suspect]
     Indication: INSOMNIA
     Dosage: SEE IMAGE
     Route: 048
     Dates: end: 20081122
  4. XYREM [Suspect]
     Indication: INSOMNIA
     Dosage: SEE IMAGE
     Route: 048
     Dates: start: 20081104

REACTIONS (8)
  - CONFUSIONAL STATE [None]
  - DYSPEPSIA [None]
  - FATIGUE [None]
  - FEELING ABNORMAL [None]
  - NAUSEA [None]
  - PAIN IN EXTREMITY [None]
  - PULSE ABSENT [None]
  - VOMITING [None]
